FAERS Safety Report 4382678-4 (Version None)
Quarter: 2004Q2

REPORT INFORMATION
  Report Type: 
  Country: None (occurrence: None)
  Receive Date: 20040617
  Receipt Date: 20040604
  Transmission Date: 20050107
  Serious: Yes (Hospitalization)
  Sender: FDA-Public Use
  Company Number: DE-JNJFOC-20040601744

PATIENT
  Age: 68 Year
  Sex: Male
  Weight: 80 kg

DRUGS (3)
  1. REMICADE [Suspect]
     Indication: TEMPORAL ARTERITIS
     Dosage: 200 MG, 1 IN 1 DAY, INTRAVENOUS
     Route: 042
     Dates: start: 20040422
  2. METHOTREXATE [Concomitant]
  3. CORTISONE (CORTISONE) [Concomitant]

REACTIONS (5)
  - CELLULITIS [None]
  - HYPERLIPIDAEMIA [None]
  - LABILE HYPERTENSION [None]
  - LYMPHADENOPATHY [None]
  - SKIN LESION [None]
